FAERS Safety Report 7021797-0 (Version None)
Quarter: 2010Q3

REPORT INFORMATION
  Report Type: 
  Country: None (occurrence: None)
  Receive Date: 20100930
  Receipt Date: 20100921
  Transmission Date: 20110219
  Serious: No
  Sender: FDA-Public Use
  Company Number: US-BIOGENIDEC-2010BI033261

PATIENT
  Age: 42 Year
  Sex: Female

DRUGS (1)
  1. TYSABRI [Suspect]
     Indication: MULTIPLE SCLEROSIS
     Route: 042
     Dates: start: 20091125, end: 20100901

REACTIONS (6)
  - APHASIA [None]
  - BALANCE DISORDER [None]
  - COORDINATION ABNORMAL [None]
  - HYPOAESTHESIA [None]
  - MOOD SWINGS [None]
  - PARANOIA [None]
